FAERS Safety Report 6564484-5 (Version None)
Quarter: 2010Q1

REPORT INFORMATION
  Report Type: 
  Country: None (occurrence: None)
  Receive Date: 20100201
  Receipt Date: 20100129
  Transmission Date: 20100710
  Serious: Yes (Other)
  Sender: FDA-Public Use
  Company Number: US-ASTRAZENECA-2009UW13545

PATIENT
  Age: 22169 Day
  Sex: Female
  Weight: 88.5 kg

DRUGS (19)
  1. SEROQUEL [Suspect]
     Indication: BIPOLAR DISORDER
     Route: 048
     Dates: start: 20020101
  2. SEROQUEL [Suspect]
     Indication: ANXIETY
     Route: 048
     Dates: start: 20020101
  3. SEROQUEL [Suspect]
     Route: 048
     Dates: start: 20020117
  4. SEROQUEL [Suspect]
     Route: 048
     Dates: start: 20020117
  5. SEROQUEL [Suspect]
     Route: 048
     Dates: start: 20021001
  6. SEROQUEL [Suspect]
     Route: 048
     Dates: start: 20021001
  7. SEROQUEL [Suspect]
     Dosage: 25MG-300MG DAILY
     Route: 048
     Dates: start: 20050522
  8. SEROQUEL [Suspect]
     Dosage: 25MG-300MG DAILY
     Route: 048
     Dates: start: 20050522
  9. PREVACID [Concomitant]
     Indication: GASTRITIS
     Route: 048
     Dates: start: 20050825
  10. KLOR-CON [Concomitant]
     Indication: MINERAL SUPPLEMENTATION
     Route: 048
     Dates: start: 20050522
  11. LASIX [Concomitant]
     Indication: POLYURIA
     Dates: start: 20050522
  12. LASIX [Concomitant]
     Route: 048
     Dates: start: 20060504
  13. DETROL [Concomitant]
     Indication: MICTURITION URGENCY
     Route: 048
     Dates: start: 20060504
  14. DIOVAN [Concomitant]
     Indication: BLOOD PRESSURE
  15. DIOVAN [Concomitant]
  16. ZELNORM [Concomitant]
  17. DONNATEL [Concomitant]
     Indication: ABDOMINAL PAIN
  18. KEPRA [Concomitant]
     Dates: start: 20050825
  19. PHENOBARB [Concomitant]
     Dosage: THRICE A DAY
     Dates: start: 20050825

REACTIONS (10)
  - CARDIAC DISORDER [None]
  - CELLULITIS [None]
  - CEREBRAL PALSY [None]
  - EYE DISORDER [None]
  - HYPERTENSION [None]
  - MULTIPLE SCLEROSIS [None]
  - OBESITY [None]
  - TYPE 2 DIABETES MELLITUS [None]
  - VASCULAR INSUFFICIENCY [None]
  - WEIGHT INCREASED [None]
